FAERS Safety Report 7701859-2 (Version None)
Quarter: 2011Q3

REPORT INFORMATION
  Report Type: 
  Country: None (occurrence: None)
  Receive Date: 20110822
  Receipt Date: 20110810
  Transmission Date: 20111222
  Serious: Yes (Hospitalization)
  Sender: FDA-Public Use
  Company Number: US-ELI_LILLY_AND_COMPANY-US201108004623

PATIENT
  Sex: Female

DRUGS (6)
  1. HUMALOG MIX 75/25 [Suspect]
     Dosage: UNK, PRN
     Dates: start: 20110401
  2. HUMALOG [Suspect]
     Dosage: UNK, PRN
     Dates: start: 20110401
  3. HUMALOG MIX 75/25 [Suspect]
     Indication: DIABETES MELLITUS
     Dosage: 35 U, EACH MORNING
     Dates: start: 20110401
  4. HUMULIN 70/30 [Suspect]
     Dosage: 20 U, EACH EVENING
  5. HUMULIN 70/30 [Suspect]
     Indication: DIABETES MELLITUS
     Dosage: 36 U, EACH MORNING
     Dates: start: 20010101, end: 20110401
  6. HUMALOG MIX 75/25 [Suspect]
     Dosage: 25 U, EACH EVENING
     Dates: start: 20110401

REACTIONS (17)
  - THYROID NEOPLASM [None]
  - HORMONE LEVEL ABNORMAL [None]
  - EPILEPSY [None]
  - CONFUSIONAL STATE [None]
  - HYPOTHYROIDISM [None]
  - HYSTERECTOMY [None]
  - PAIN [None]
  - APHASIA [None]
  - BREAST OPERATION [None]
  - VISUAL IMPAIRMENT [None]
  - ANXIETY [None]
  - MENTAL IMPAIRMENT [None]
  - BLOOD GLUCOSE DECREASED [None]
  - FEELING ABNORMAL [None]
  - ASTHENIA [None]
  - HYPOGLYCAEMIC UNCONSCIOUSNESS [None]
  - PRECANCEROUS CELLS PRESENT [None]
